FAERS Safety Report 5583622-4 (Version None)
Quarter: 2007Q4

REPORT INFORMATION
  Report Type: 
  Country: None (occurrence: None)
  Receive Date: 20071231
  Receipt Date: 20071218
  Transmission Date: 20080405
  Serious: No
  Sender: FDA-Public Use
  Company Number: CHPA2007US13798

PATIENT
  Sex: Male

DRUGS (1)
  1. THERAFLU FLU AND SORE THROAT (NCH)(PARACETAMOL, DIPHENHYDRAMINE, PHENY [Suspect]
     Indication: PHARYNGOLARYNGEAL PAIN
     Dosage: 6 TSP, ONCE/SINGLE, ORAL
     Route: 048
     Dates: start: 20071217, end: 20071217

REACTIONS (2)
  - ANXIETY [None]
  - DYSPNOEA [None]
